FAERS Safety Report 23288366 (Version 1)
Quarter: 2023Q4

REPORT INFORMATION
  Report Type: Spontaneous
  Country: US (occurrence: None)
  Receive Date: 20231212
  Receipt Date: 20231212
  Transmission Date: 20240109
  Serious: Yes (Other)
  Sender: FDA-Public Use
  Company Number: None

PATIENT
  Age: 60 Year
  Sex: Female

DRUGS (1)
  1. KESIMPTA [Suspect]
     Active Substance: OFATUMUMAB
     Dosage: FREQUENCY : MONTHLY;?

REACTIONS (8)
  - Trigeminal neuralgia [None]
  - Multiple sclerosis relapse [None]
  - Dizziness [None]
  - Fatigue [None]
  - Tooth fracture [None]
  - Fall [None]
  - Haematocrit decreased [None]
  - Red blood cell count abnormal [None]
